FAERS Safety Report 17203277 (Version 1)
Quarter: 2019Q4

REPORT INFORMATION
  Report Type: Spontaneous
  Country: SE (occurrence: SE)
  Receive Date: 20191226
  Receipt Date: 20191226
  Transmission Date: 20200122
  Serious: Yes (Hospitalization)
  Sender: FDA-Public Use
  Company Number: SE-NAPPMUNDI-GBR-2019-0073907

PATIENT
  Age: 21 Year
  Sex: Female

DRUGS (7)
  1. ATENOLOL. [Suspect]
     Active Substance: ATENOLOL
     Indication: PRODUCT USED FOR UNKNOWN INDICATION
     Dosage: ^AMBULANSEN HITTAT KARTOR HEMMA^, 100 MG ATENOLOL
     Route: 048
     Dates: start: 201904, end: 201904
  2. ATARAX [Suspect]
     Active Substance: HYDROXYZINE HYDROCHLORIDE
     Indication: PRODUCT USED FOR UNKNOWN INDICATION
     Dosage: ^AMBULANSEN HITTAT KARTOR HEMMA^, 120 MG ATARAX
     Route: 048
     Dates: start: 201904, end: 201904
  3. OXYCODONE HYDROCHLORIDE. [Suspect]
     Active Substance: OXYCODONE HYDROCHLORIDE
     Indication: PRODUCT USED FOR UNKNOWN INDICATION
     Dosage: ^AMBULANSEN HITTAT KARTOR HEMMA^, 15 MG OXYKODON
     Route: 048
     Dates: start: 201904, end: 201904
  4. PROPAVAN [Suspect]
     Active Substance: PROPIOMAZINE
     Indication: PRODUCT USED FOR UNKNOWN INDICATION
     Dosage: ^AMBULANSEN HITTAT KARTOR HEMMA^, 1250 MG PROPAVAN
     Route: 048
     Dates: start: 201904, end: 201904
  5. ALVEDON [Suspect]
     Active Substance: ACETAMINOPHEN
     Indication: PRODUCT USED FOR UNKNOWN INDICATION
     Dosage: ^AMBULANSEN HITTAT KARTOR HEMMA^, 5 G ALVEDON
     Route: 048
     Dates: start: 201904, end: 201904
  6. IPREN [Suspect]
     Active Substance: IBUPROFEN
     Indication: PRODUCT USED FOR UNKNOWN INDICATION
     Dosage: ^AMBULANSEN HITTAT KARTOR HEMMA^, 4 G IPREN
     Route: 048
     Dates: start: 201904, end: 201904
  7. OMEPRAZOLE. [Suspect]
     Active Substance: OMEPRAZOLE
     Indication: PRODUCT USED FOR UNKNOWN INDICATION
     Dosage: ^AMBULANSEN HITTAT KARTOR HEMMA^, 140 MG OMEPRAZOLE
     Route: 048
     Dates: start: 201904, end: 201904

REACTIONS (3)
  - Intentional overdose [Unknown]
  - Intentional self-injury [Unknown]
  - Depressed level of consciousness [Unknown]

NARRATIVE: CASE EVENT DATE: 201904
